FAERS Safety Report 8777882 (Version 1)
Quarter: 2012Q4

REPORT INFORMATION
  Report Type: 
  Country: CR (occurrence: CR)
  Receive Date: 20120912
  Receipt Date: 20120912
  Transmission Date: 20130627
  Serious: Yes (Death, Hospitalization)
  Sender: FDA-Public Use
  Company Number: PHHY2012CR079031

PATIENT
  Age: 54 Year
  Sex: Female

DRUGS (3)
  1. TASIGNA [Suspect]
     Indication: CHRONIC MYELOID LEUKAEMIA
     Dosage: 400 mg, BID
     Route: 048
  2. CYTARABINE [Concomitant]
  3. AMRUBICIN [Concomitant]

REACTIONS (3)
  - Death [Fatal]
  - Septic shock [Unknown]
  - Chronic myeloid leukaemia transformation [Unknown]
